FAERS Safety Report 16024263 (Version 2)
Quarter: 2019Q2

REPORT INFORMATION
  Report Type: Report from Study
  Country: CA (occurrence: CA)
  Receive Date: 20190301
  Receipt Date: 20190530
  Transmission Date: 20190711
  Serious: Yes (Disabling, Other)
  Sender: FDA-Public Use
  Company Number: CA-ASTRAZENECA-2019SE24239

PATIENT
  Sex: Female
  Weight: 70 kg

DRUGS (8)
  1. IMFINZI [Suspect]
     Active Substance: DURVALUMAB
     Indication: LUNG NEOPLASM MALIGNANT
     Route: 042
     Dates: start: 20181022, end: 20181105
  2. METHOTREXATE. [Concomitant]
     Active Substance: METHOTREXATE
  3. IMFINZI [Suspect]
     Active Substance: DURVALUMAB
     Indication: LUNG NEOPLASM MALIGNANT
     Route: 042
     Dates: end: 20190117
  4. ASPIRIN. [Concomitant]
     Active Substance: ASPIRIN
  5. CLONAZEPAM. [Concomitant]
     Active Substance: CLONAZEPAM
  6. EFFEXOR [Concomitant]
     Active Substance: VENLAFAXINE HYDROCHLORIDE
  7. FLOVIENT [Concomitant]
  8. SPIRIVA [Concomitant]
     Active Substance: TIOTROPIUM BROMIDE MONOHYDRATE

REACTIONS (2)
  - Pneumonitis [Not Recovered/Not Resolved]
  - Arthritis [Recovering/Resolving]
